FAERS Safety Report 24291006 (Version 1)
Quarter: 2024Q3

REPORT INFORMATION
  Report Type: Spontaneous
  Country: IT (occurrence: IT)
  Receive Date: 20240906
  Receipt Date: 20240906
  Transmission Date: 20241017
  Serious: Yes (Other)
  Sender: RECKITT BENCKISER
  Company Number: IT-INDIVIOR UK LIMITED-INDV-156296-2024

PATIENT

DRUGS (2)
  1. BUPRENORPHINE [Suspect]
     Active Substance: BUPRENORPHINE
     Indication: Drug dependence
     Dosage: UNK
     Route: 065
  2. BUPRENORPHINE [Suspect]
     Active Substance: BUPRENORPHINE
     Indication: Bipolar disorder

REACTIONS (5)
  - Malignant melanoma [Not Recovered/Not Resolved]
  - Eating disorder [Unknown]
  - Lymphadenopathy [Not Recovered/Not Resolved]
  - Headache [Unknown]
  - Drug abuse [Unknown]
